FAERS Safety Report 6908629-3 (Version None)
Quarter: 2010Q3

REPORT INFORMATION
  Report Type: 
  Country: None (occurrence: None)
  Receive Date: 20100805
  Receipt Date: 20100726
  Transmission Date: 20110219
  Serious: Yes (Other)
  Sender: FDA-Public Use
  Company Number: BR-PFIZER INC-2010093375

PATIENT
  Age: 57 Year
  Sex: Male

DRUGS (1)
  1. VIAGRA [Suspect]
     Indication: SEXUAL DYSFUNCTION
     Dosage: 50 MG, ONCE WEEKLY
     Route: 048
     Dates: start: 20100301, end: 20100301

REACTIONS (2)
  - OCULAR HYPERAEMIA [None]
  - VISUAL ACUITY REDUCED [None]
